FAERS Safety Report 9831404 (Version 1)
Quarter: 2014Q1

REPORT INFORMATION
  Report Type: Spontaneous
  Country: FR (occurrence: FR)
  Receive Date: 20140121
  Receipt Date: 20140121
  Transmission Date: 20141002
  Serious: Yes (Hospitalization)
  Sender: FDA-Public Use
  Company Number: FR-BRISTOL-MYERS SQUIBB COMPANY-20027017

PATIENT
  Age: 31 Year
  Sex: Male

DRUGS (5)
  1. BARACLUDE [Suspect]
     Indication: CHRONIC HEPATITIS B
     Dates: start: 200706
  2. CIPROFLOXACIN [Suspect]
     Route: 042
     Dates: start: 20080904, end: 20081014
  3. AZACITIDINE [Suspect]
     Indication: MYELODYSPLASTIC SYNDROME
     Dates: start: 20071001, end: 20080218
  4. VFEND [Suspect]
     Indication: BRONCHOPULMONARY ASPERGILLOSIS
     Dates: start: 200711, end: 20080912
  5. SANDIMMUN [Suspect]
     Dates: start: 20080910, end: 20081017

REACTIONS (2)
  - Neuropathy peripheral [Recovering/Resolving]
  - Paraesthesia [Recovering/Resolving]
